FAERS Safety Report 7156633-5 (Version None)
Quarter: 2010Q4

REPORT INFORMATION
  Report Type: 
  Country: None (occurrence: None)
  Receive Date: 20101214
  Receipt Date: 20100305
  Transmission Date: 20110411
  Serious: No
  Sender: FDA-Public Use
  Company Number: US-ASTRAZENECA-2009SE07999

PATIENT
  Sex: Female
  Weight: 89.8 kg

DRUGS (3)
  1. CRESTOR [Suspect]
     Indication: HYPERLIPIDAEMIA
     Route: 048
  2. CRESTOR [Suspect]
     Route: 048
  3. DIOVAN HCT [Concomitant]

REACTIONS (2)
  - ABNORMAL DREAMS [None]
  - SINUS DISORDER [None]
